FAERS Safety Report 8360257-1 (Version None)
Quarter: 2012Q2

REPORT INFORMATION
  Report Type: 
  Country: None (occurrence: None)
  Receive Date: 20120515
  Receipt Date: 20120508
  Transmission Date: 20120825
  Serious: Yes (Other)
  Sender: FDA-Public Use
  Company Number: CA-ASTRAZENECA-2012SE29638

PATIENT
  Age: 45 Year
  Sex: Female

DRUGS (6)
  1. ATACAND [Suspect]
     Dosage: 8 MG ONCE DAILY FOR 2 WEEKS
     Route: 048
     Dates: start: 20111205
  2. INDERAL LA [Concomitant]
     Route: 048
     Dates: start: 20081101
  3. NARATRIPTAN [Concomitant]
     Route: 048
     Dates: start: 20050101
  4. RABEPRAZOLE SODIUM [Concomitant]
     Route: 048
     Dates: start: 20100601
  5. ATACAND [Suspect]
     Dosage: 16 MG ONCE DAILY
     Route: 048
     Dates: start: 20111201
  6. SYNTHROID [Concomitant]
     Route: 048
     Dates: start: 20070401

REACTIONS (4)
  - ERYTHEMA [None]
  - BURNING SENSATION [None]
  - DERMATITIS ALLERGIC [None]
  - SKIN IRRITATION [None]
